FAERS Safety Report 9805551 (Version 1)
Quarter: 2014Q1

REPORT INFORMATION
  Report Type: Spontaneous
  Country: US (occurrence: US)
  Receive Date: 20140109
  Receipt Date: 20140109
  Transmission Date: 20141002
  Serious: Yes (Hospitalization)
  Sender: FDA-Public Use
  Company Number: US-B.I. PHARMACEUTICALS,INC./RIDGEFIELD-2014-BI-00574BP

PATIENT
  Age: 81 Year
  Sex: Male

DRUGS (4)
  1. SPIRIVA [Suspect]
     Indication: CHRONIC OBSTRUCTIVE PULMONARY DISEASE
     Dosage: 18 MCG
     Route: 055
     Dates: start: 2010
  2. CARDIZEM [Concomitant]
     Indication: HYPERTENSION
     Route: 048
  3. ALBUTEROL [Concomitant]
     Route: 055
  4. SYMBICORT [Concomitant]
     Route: 055

REACTIONS (3)
  - Clostridium difficile infection [Recovered/Resolved]
  - Dysphonia [Not Recovered/Not Resolved]
  - Oral candidiasis [Recovered/Resolved]
